FAERS Safety Report 24429205 (Version 1)
Quarter: 2024Q4

REPORT INFORMATION
  Report Type: Spontaneous
  Country: BE (occurrence: BE)
  Receive Date: 20241011
  Receipt Date: 20241011
  Transmission Date: 20250114
  Serious: Yes (Death, Other)
  Sender: PFIZER
  Company Number: BE-009507513-2410BEL000407

PATIENT
  Age: 54 Year
  Sex: Female

DRUGS (3)
  1. CARBOPLATIN [Suspect]
     Active Substance: CARBOPLATIN
     Indication: Non-small cell lung cancer stage IV
     Dosage: UNK
  2. PACLITAXEL [Suspect]
     Active Substance: PACLITAXEL
     Indication: Non-small cell lung cancer stage IV
     Dosage: UNK
  3. PEMBROLIZUMAB [Suspect]
     Active Substance: PEMBROLIZUMAB
     Indication: Non-small cell lung cancer stage IV
     Dosage: UNK

REACTIONS (9)
  - Neoplasm progression [Fatal]
  - Hepatotoxicity [Recovered/Resolved]
  - Oesophageal candidiasis [Recovered/Resolved]
  - Autoimmune cholangitis [Unknown]
  - Immune-mediated pancreatitis [Unknown]
  - Immune-mediated gastritis [Not Recovered/Not Resolved]
  - Gastritis haemorrhagic [Not Recovered/Not Resolved]
  - Muscle atrophy [Unknown]
  - Gait disturbance [Unknown]
